FAERS Safety Report 24011219 (Version 1)
Quarter: 2024Q2

REPORT INFORMATION
  Report Type: Other
  Country: CN (occurrence: CN)
  Receive Date: 20240625
  Receipt Date: 20240625
  Transmission Date: 20240717
  Serious: Yes (Other)
  Sender: FDA-Public Use
  Company Number: CN-GE HEALTHCARE-2024CSU006929

PATIENT
  Age: 58 Year
  Sex: Male
  Weight: 65 kg

DRUGS (1)
  1. OMNIPAQUE [Suspect]
     Active Substance: IOHEXOL
     Indication: Computerised tomogram abdomen
     Dosage: 100 ML, TOTAL
     Route: 041
     Dates: start: 20240617, end: 20240617

REACTIONS (3)
  - Laryngeal obstruction [Recovering/Resolving]
  - Contrast media allergy [Recovering/Resolving]
  - Rash pruritic [Recovered/Resolved]

NARRATIVE: CASE EVENT DATE: 20240617
